FAERS Safety Report 13340994 (Version 2)
Quarter: 2017Q1

REPORT INFORMATION
  Report Type: Spontaneous
  Country: JP (occurrence: JP)
  Receive Date: 20170316
  Receipt Date: 20170329
  Transmission Date: 20170428
  Serious: Yes (Congenital Anomaly, Other)
  Sender: FDA-Public Use
  Company Number: JP-ASTRAZENECA-2017SE27254

PATIENT
  Age: 0 Year
  Sex: Female

DRUGS (4)
  1. SEROQUEL [Suspect]
     Active Substance: QUETIAPINE FUMARATE
     Route: 048
     Dates: start: 2016, end: 20170227
  2. LONASEN [Suspect]
     Active Substance: BLONANSERIN
     Route: 065
     Dates: start: 2017
  3. SEROQUEL [Suspect]
     Active Substance: QUETIAPINE FUMARATE
     Route: 048
     Dates: start: 2017
  4. LONASEN [Suspect]
     Active Substance: BLONANSERIN
     Route: 065
     Dates: start: 2016, end: 20170227

REACTIONS (3)
  - Exposure during breast feeding [Unknown]
  - Transient tachypnoea of the newborn [Recovered/Resolved]
  - Drug withdrawal syndrome neonatal [Unknown]

NARRATIVE: CASE EVENT DATE: 2017
